FAERS Safety Report 5624447-0 (Version None)
Quarter: 2008Q1

REPORT INFORMATION
  Report Type: 
  Country: None (occurrence: None)
  Receive Date: 20080211
  Receipt Date: 20080211
  Transmission Date: 20080703
  Serious: Yes (Death)
  Sender: FDA-Public Use
  Company Number: None

PATIENT
  Age: 64 Year
  Sex: Male
  Weight: 65.7716 kg

DRUGS (1)
  1. CHANTIX [Suspect]
     Indication: CORONARY ARTERY DISEASE
     Dates: start: 20070103, end: 20070208

REACTIONS (3)
  - COMPLETED SUICIDE [None]
  - INTENTIONAL SELF-INJURY [None]
  - MALAISE [None]
